FAERS Safety Report 19241192 (Version 1)
Quarter: 2021Q2

REPORT INFORMATION
  Report Type: Spontaneous
  Country: IT (occurrence: IT)
  Receive Date: 20210510
  Receipt Date: 20210510
  Transmission Date: 20210717
  Serious: Yes (Hospitalization, Other)
  Sender: FDA-Public Use
  Company Number: NVSC2021IT103161

PATIENT
  Age: 35 Year
  Sex: Male

DRUGS (4)
  1. ZOLPIDEM [Suspect]
     Active Substance: ZOLPIDEM TARTRATE
     Dosage: 300 MG, QD, MAINLY AT BEDTIME
     Route: 065
  2. ZOLPIDEM [Suspect]
     Active Substance: ZOLPIDEM TARTRATE
     Indication: INSOMNIA
     Dosage: UNK
     Route: 048
  3. ZOLPIDEM [Suspect]
     Active Substance: ZOLPIDEM TARTRATE
     Dosage: 30 MG, QD
     Route: 042
  4. COCAINE [Concomitant]
     Active Substance: COCAINE
     Indication: SUBSTANCE USE
     Dosage: UNK
     Route: 065

REACTIONS (10)
  - Euphoric mood [Unknown]
  - Irritability [Unknown]
  - Myalgia [Unknown]
  - Muscle spasms [Unknown]
  - Drug abuse [Unknown]
  - Aggression [Unknown]
  - Withdrawal syndrome [Unknown]
  - Drug dependence [Unknown]
  - Insomnia [Unknown]
  - Restlessness [Unknown]
